FAERS Safety Report 12526428 (Version 1)
Quarter: 2016Q3

REPORT INFORMATION
  Report Type: Spontaneous
  Country: US (occurrence: None)
  Receive Date: 20160701
  Receipt Date: 20160701
  Transmission Date: 20161109
  Serious: No
  Sender: FDA-Public Use
  Company Number: None

PATIENT
  Age: 32 Year
  Sex: Female
  Weight: 64.41 kg

DRUGS (3)
  1. IBUPROFEN. [Concomitant]
     Active Substance: IBUPROFEN
  2. COPAXONE [Suspect]
     Active Substance: GLATIRAMER ACETATE
     Indication: MULTIPLE SCLEROSIS
     Dosage: 12 INJECTION(S) 3 TIMES A WEEK GIVEN INTO/UNDER THE SKIN
     Route: 058
     Dates: start: 20160622, end: 20160629
  3. VITAMIN D3 [Concomitant]
     Active Substance: CHOLECALCIFEROL

REACTIONS (7)
  - Chills [None]
  - Piloerection [None]
  - Arthralgia [None]
  - Migraine [None]
  - Burning sensation [None]
  - Tremor [None]
  - Asthenia [None]

NARRATIVE: CASE EVENT DATE: 20160629
